FAERS Safety Report 8278326 (Version 2)
Quarter: 2012Q4

REPORT INFORMATION
  Report Type: 
  Country: US (occurrence: US)
  Receive Date: 20111207
  Receipt Date: 20121107
  Transmission Date: 20130627
  Serious: Yes (Life-Threatening, Hospitalization, Other)
  Sender: FDA-Public Use
  Company Number: US-GLAXOSMITHKLINE-A0955259A

PATIENT
  Age: 30 Year
  Sex: Female

DRUGS (2)
  1. ONDANSETRON [Suspect]
     Indication: HYPEREMESIS GRAVIDARUM
     Dosage: 32MG Per day
     Route: 042
  2. ONDANSETRON [Suspect]
     Indication: HYPEREMESIS GRAVIDARUM
     Route: 048

REACTIONS (3)
  - Drug ineffective [Not Recovered/Not Resolved]
  - Dehydration [Not Recovered/Not Resolved]
  - Exposure during pregnancy [Unknown]
